FAERS Safety Report 4884168-9 (Version None)
Quarter: 2006Q1

REPORT INFORMATION
  Report Type: 
  Country: None (occurrence: None)
  Receive Date: 20060118
  Receipt Date: 20050801
  Transmission Date: 20060701
  Serious: Yes (Hospitalization, Other)
  Sender: FDA-Public Use
  Company Number: US-MERCK-0508USA00831

PATIENT
  Age: 71 Year
  Sex: Male
  Weight: 90 kg

DRUGS (7)
  1. VIOXX [Suspect]
     Indication: ARTHRITIS
     Route: 048
     Dates: start: 20000101, end: 20040901
  2. GLUCOPHAGE [Concomitant]
     Route: 065
  3. PRAVACHOL [Concomitant]
     Route: 065
  4. ATENOLOL [Concomitant]
     Route: 065
  5. PROCARDIA [Concomitant]
     Route: 065
  6. MECLIZINE [Concomitant]
     Route: 065
  7. AMBIEN [Concomitant]
     Route: 065

REACTIONS (8)
  - CARDIAC FAILURE CONGESTIVE [None]
  - CEREBROVASCULAR ACCIDENT [None]
  - DIABETES MELLITUS [None]
  - DIZZINESS [None]
  - STERNOTOMY [None]
  - THROMBOSIS [None]
  - THYROID DISORDER [None]
  - THYROIDECTOMY [None]
